FAERS Safety Report 25084358 (Version 2)
Quarter: 2025Q1

REPORT INFORMATION
  Report Type: Spontaneous
  Country: AT (occurrence: AT)
  Receive Date: 20250317
  Receipt Date: 20250320
  Transmission Date: 20250408
  Serious: Yes (Other)
  Sender: BAYER HEALTHCARE PHARMACEUTICALS INC.
  Company Number: AT-SANDOZ-SDZ2025AT009537

PATIENT
  Sex: Male

DRUGS (1)
  1. CIPROFLOXACIN [Suspect]
     Active Substance: CIPROFLOXACIN
     Indication: Product used for unknown indication

REACTIONS (5)
  - Choking [Not Recovered/Not Resolved]
  - Anaphylactic reaction [None]
  - Claustrophobia [Not Recovered/Not Resolved]
  - Dyspnoea [Not Recovered/Not Resolved]
  - Drug intolerance [None]

NARRATIVE: CASE EVENT DATE: 20250211
